FAERS Safety Report 8579670-2 (Version None)
Quarter: 2012Q3

REPORT INFORMATION
  Report Type: 
  Country: None (occurrence: None)
  Receive Date: 20120726
  Receipt Date: 20120711
  Transmission Date: 20120928
  Serious: Yes (Hospitalization)
  Sender: FDA-Public Use
  Company Number: DSJ-2012-10803

PATIENT
  Age: 44 Year
  Sex: Male
  Weight: 64 kg

DRUGS (5)
  1. MYSLEE (ZOLPIDEM TARTRATE) (TABLET) (ZOLPIDEM TARTRATE) [Concomitant]
  2. OLMESARTAN MEDOXOMIL [Suspect]
     Indication: HYPERTENSION
     Dosage: 20 MG (20 MG,1 IN 1 D),PER ORAL ; 1000-1200MG (1 IN 1 D),PER ORAL
     Route: 048
     Dates: start: 20110902, end: 20120525
  3. OLMESARTAN MEDOXOMIL [Suspect]
     Indication: HYPERTENSION
     Dosage: 20 MG (20 MG,1 IN 1 D),PER ORAL ; 1000-1200MG (1 IN 1 D),PER ORAL
     Route: 048
     Dates: start: 20120526, end: 20120526
  4. EPZICOM [Suspect]
     Indication: HIV INFECTION
     Dosage: SEE IMAGE
     Route: 048
     Dates: start: 20120526, end: 20120526
  5. EPZICOM [Suspect]
     Indication: HIV INFECTION
     Dosage: SEE IMAGE
     Route: 048
     Dates: start: 20100608, end: 20120525

REACTIONS (7)
  - RENAL FAILURE ACUTE [None]
  - ASTHENIA [None]
  - HAEMODIALYSIS [None]
  - SUICIDE ATTEMPT [None]
  - MALAISE [None]
  - OVERDOSE [None]
  - HYPERSOMNIA [None]
